FAERS Safety Report 25926991 (Version 2)
Quarter: 2025Q4

REPORT INFORMATION
  Report Type: Report from Study
  Country: US (occurrence: US)
  Receive Date: 20251015
  Receipt Date: 20251114
  Transmission Date: 20260117
  Serious: Yes (Hospitalization)
  Sender: ELI LILLY AND COMPANY
  Company Number: US-ELI_LILLY_AND_COMPANY-US202307004434

PATIENT
  Age: 71 Year
  Sex: Female

DRUGS (4)
  1. VERZENIO [Suspect]
     Active Substance: ABEMACICLIB
     Indication: Breast cancer
     Dosage: 150 MG, UNKNOWN
     Route: 048
     Dates: start: 20230625, end: 202401
  2. VERZENIO [Suspect]
     Active Substance: ABEMACICLIB
     Dosage: 50 MG, UNKNOWN
     Route: 048
     Dates: end: 20250926
  3. VERZENIO [Suspect]
     Active Substance: ABEMACICLIB
     Dosage: 50 MG, UNKNOWN
     Route: 048
     Dates: start: 20251010, end: 202510
  4. ANASTROZOLE [Concomitant]
     Active Substance: ANASTROZOLE
     Indication: Breast cancer
     Dosage: UNK, DAILY
     Route: 048

REACTIONS (10)
  - Traumatic lung injury [Not Recovered/Not Resolved]
  - Sepsis [Not Recovered/Not Resolved]
  - Nasopharyngitis [Not Recovered/Not Resolved]
  - Pneumonia [Not Recovered/Not Resolved]
  - Taste disorder [Not Recovered/Not Resolved]
  - Abdominal pain upper [Not Recovered/Not Resolved]
  - Constipation [Recovered/Resolved]
  - Decreased appetite [Not Recovered/Not Resolved]
  - Diarrhoea [Recovered/Resolved]
  - Pneumonia [Recovered/Resolved]

NARRATIVE: CASE EVENT DATE: 20241201
